FAERS Safety Report 8473135-4 (Version None)
Quarter: 2012Q2

REPORT INFORMATION
  Report Type: 
  Country: None (occurrence: None)
  Receive Date: 20120627
  Receipt Date: 20120626
  Transmission Date: 20120825
  Serious: Yes (Hospitalization, Other)
  Sender: FDA-Public Use
  Company Number: BG-PFIZER INC-2012136920

PATIENT
  Age: 37 Year
  Sex: Female

DRUGS (1)
  1. SYNAREL [Suspect]
     Indication: ENDOMETRIOSIS
     Dosage: 400 UG, 2X/DAY
     Route: 045
     Dates: start: 20120101

REACTIONS (3)
  - ENDOMETRIAL HYPERPLASIA [None]
  - UTERINE HAEMORRHAGE [None]
  - ENDOMETRIAL ATROPHY [None]
